FAERS Safety Report 20749929 (Version 2)
Quarter: 2022Q2

REPORT INFORMATION
  Report Type: Spontaneous
  Country: KR (occurrence: KR)
  Receive Date: 20220426
  Receipt Date: 20220622
  Transmission Date: 20220721
  Serious: Yes (Other)
  Sender: FDA-Public Use
  Company Number: KR-GLAXOSMITHKLINE-KRCH2022014840

PATIENT

DRUGS (1)
  1. NICOTINELL [Suspect]
     Active Substance: NICOTINE
     Indication: Smoking cessation therapy
     Dosage: UNK

REACTIONS (5)
  - Drug dependence [Unknown]
  - Dry throat [Unknown]
  - General physical health deterioration [Unknown]
  - Thinking abnormal [Unknown]
  - Therapeutic product ineffective [Unknown]
